FAERS Safety Report 9101033 (Version 2)
Quarter: 2013Q1

REPORT INFORMATION
  Report Type: Report from Study
  Country: US (occurrence: US)
  Receive Date: 20130215
  Receipt Date: 20130228
  Transmission Date: 20140127
  Serious: Yes (Hospitalization)
  Sender: FDA-Public Use
  Company Number: US-ACTELION-A-NJ2011-53943

PATIENT
  Age: 58 Year
  Sex: Male

DRUGS (2)
  1. TRACLEER [Suspect]
     Indication: PULMONARY HYPERTENSION
     Dosage: UNK
     Route: 048
  2. COUMADIN [Concomitant]

REACTIONS (9)
  - Cellulitis [Unknown]
  - Chronic obstructive pulmonary disease [Unknown]
  - Emphysema [Unknown]
  - Dyspnoea [Unknown]
  - Activities of daily living impaired [Unknown]
  - Asthma [Unknown]
  - Oedema peripheral [Unknown]
  - Nocturnal dyspnoea [Unknown]
  - Exercise tolerance decreased [Unknown]
